FAERS Safety Report 5235467-2 (Version None)
Quarter: 2007Q1

REPORT INFORMATION
  Report Type: 
  Country: None (occurrence: None)
  Receive Date: 20070212
  Receipt Date: 20070130
  Transmission Date: 20070707
  Serious: Yes (Hospitalization)
  Sender: FDA-Public Use
  Company Number: PHBS2007NL01767

PATIENT
  Sex: Female

DRUGS (5)
  1. BISOPROLOL FUMARATE [Suspect]
     Dosage: 5 MG, QD
     Dates: start: 19980101
  2. LEVETIRACETAM [Suspect]
     Dosage: 500 MG, BID
     Dates: start: 20030120
  3. LEVETIRACETAM [Suspect]
     Dosage: 750 MG, BID
  4. OXAZEPAM [Concomitant]
     Dosage: 10 MG, PRN
     Dates: start: 20060208
  5. OXCARBAZEPINE [Suspect]
     Dosage: 300 MG, TID
     Dates: start: 20060911

REACTIONS (2)
  - CONCOMITANT DISEASE AGGRAVATED [None]
  - RENAL COLIC [None]
